FAERS Safety Report 6779229-3 (Version None)
Quarter: 2010Q2

REPORT INFORMATION
  Report Type: 
  Country: None (occurrence: None)
  Receive Date: 20100618
  Receipt Date: 20100419
  Transmission Date: 20101027
  Serious: No
  Sender: FDA-Public Use
  Company Number: A0855694A

PATIENT
  Age: 76 Year
  Sex: Female

DRUGS (11)
  1. PROMACTA [Suspect]
     Dosage: 75MG PER DAY
     Route: 048
     Dates: start: 20100201
  2. LEXAPRO [Concomitant]
  3. LASIX [Concomitant]
  4. TANDEM PLUS [Concomitant]
  5. KLOR-CON [Concomitant]
  6. MAGNESIUM OXIDE [Concomitant]
  7. SYNTHROID [Concomitant]
  8. COLACE [Concomitant]
  9. FOLIC ACID [Concomitant]
  10. SUBUTEX [Concomitant]
  11. UNKNOWN [Concomitant]

REACTIONS (4)
  - DRUG INEFFECTIVE [None]
  - FATIGUE [None]
  - HERPES ZOSTER [None]
  - HYPERSOMNIA [None]
